FAERS Safety Report 20211581 (Version 1)
Quarter: 2021Q4

REPORT INFORMATION
  Report Type: Spontaneous
  Country: US (occurrence: None)
  Receive Date: 20211220
  Receipt Date: 20211220
  Transmission Date: 20220303
  Serious: Yes (Other)
  Sender: FDA-Public Use
  Company Number: None

PATIENT
  Sex: Male

DRUGS (2)
  1. GLATIRAMER [Suspect]
     Active Substance: GLATIRAMER
     Indication: Multiple sclerosis
     Dosage: OTHER FREQUENCY : SEE B.6 (PAGE2);?
     Route: 058
     Dates: start: 20180608
  2. CIALIS [Concomitant]
     Active Substance: TADALAFIL

REACTIONS (3)
  - Depression [None]
  - Anxiety [None]
  - Fatigue [None]
